FAERS Safety Report 8367218-7 (Version None)
Quarter: 2012Q2

REPORT INFORMATION
  Report Type: 
  Country: None (occurrence: None)
  Receive Date: 20120517
  Receipt Date: 20120509
  Transmission Date: 20120825
  Serious: Yes (Other)
  Sender: FDA-Public Use
  Company Number: PHHY2012KW040354

PATIENT
  Age: 65 Year
  Sex: Female

DRUGS (4)
  1. ASPIRIN [Concomitant]
     Dosage: 100 MG
  2. ATORVASTATIN CALCIUM [Concomitant]
     Dosage: 20 MG, QD
  3. VALSARTAN [Suspect]
     Dosage: 80 MG,ONCE DAILY
  4. VERAPAMIL [Suspect]
     Dosage: 240 MG, QD

REACTIONS (2)
  - NODAL ARRHYTHMIA [None]
  - LEUKOCYTOSIS [None]
